FAERS Safety Report 9768419 (Version 2)
Quarter: 2014Q1

REPORT INFORMATION
  Report Type: Spontaneous
  Country: US (occurrence: US)
  Receive Date: 20131217
  Receipt Date: 20140210
  Transmission Date: 20141002
  Serious: No
  Sender: FDA-Public Use
  Company Number: US-009507513-1312USA007780

PATIENT
  Sex: Female

DRUGS (1)
  1. LOTRIMIN ULTRA [Suspect]
     Indication: TINEA INFECTION
     Dosage: UNK, BID
     Route: 061

REACTIONS (1)
  - Drug ineffective for unapproved indication [Unknown]
